FAERS Safety Report 17187878 (Version 2)
Quarter: 2020Q1

REPORT INFORMATION
  Report Type: Spontaneous
  Country: AR (occurrence: AR)
  Receive Date: 20191221
  Receipt Date: 20200218
  Transmission Date: 20200409
  Serious: Yes (Life-Threatening, Hospitalization, Other)
  Sender: FDA-Public Use
  Company Number: AR-AMGEN-ARGSP2019209455

PATIENT
  Age: 66 Year
  Weight: 67 kg

DRUGS (4)
  1. PROLIA [Suspect]
     Active Substance: DENOSUMAB
     Indication: OSTEOPOROSIS
     Dosage: UNK
     Route: 058
     Dates: start: 20181210, end: 20181210
  2. LOSARTAN. [Concomitant]
     Active Substance: LOSARTAN
  3. SIMVASTATIN. [Concomitant]
     Active Substance: SIMVASTATIN
  4. CHOLECALCIFEROL [Concomitant]
     Active Substance: CHOLECALCIFEROL

REACTIONS (1)
  - Pachymeningitis [Recovered/Resolved]

NARRATIVE: CASE EVENT DATE: 20190102
